FAERS Safety Report 17816968 (Version 1)
Quarter: 2020Q2

REPORT INFORMATION
  Report Type: Spontaneous
  Country: US (occurrence: US)
  Receive Date: 20200522
  Receipt Date: 20200522
  Transmission Date: 20200714
  Serious: Yes (Hospitalization)
  Sender: FDA-Public Use
  Company Number: None

PATIENT
  Sex: Female

DRUGS (2)
  1. VERZENIO [Suspect]
     Active Substance: ABEMACICLIB
     Indication: DRUG THERAPY
     Route: 048
     Dates: start: 20200306
  2. MAGNESIUM TAB 250MG [Concomitant]
     Dates: start: 20200326

REACTIONS (4)
  - Fatigue [None]
  - Diarrhoea [None]
  - Therapy interrupted [None]
  - Alopecia [None]
